FAERS Safety Report 9642396 (Version 1)
Quarter: 2013Q4

REPORT INFORMATION
  Report Type: Report from Study
  Country: US (occurrence: US)
  Receive Date: 20131024
  Receipt Date: 20131024
  Transmission Date: 20140711
  Serious: Yes (Death)
  Sender: FDA-Public Use
  Company Number: US-ROCHE-1292860

PATIENT
  Sex: Female

DRUGS (2)
  1. ACTIVASE [Suspect]
     Indication: PULMONARY EMBOLISM
     Route: 042
     Dates: start: 20130924
  2. ACTIVASE [Suspect]
     Indication: INFARCTION

REACTIONS (1)
  - Death [Fatal]
